FAERS Safety Report 12215660 (Version 2)
Quarter: 2016Q4

REPORT INFORMATION
  Report Type: Spontaneous
  Country: GB (occurrence: GB)
  Receive Date: 20160328
  Receipt Date: 20161010
  Transmission Date: 20170207
  Serious: Yes (Life-Threatening, Hospitalization, Other)
  Sender: FDA-Public Use
  Company Number: PHHY2016GB037636

PATIENT
  Age: 55 Year
  Sex: Male
  Weight: 101 kg

DRUGS (2)
  1. TRAMADOL HYDROCHLORIDE. [Suspect]
     Active Substance: TRAMADOL HYDROCHLORIDE
     Indication: PAIN
     Dosage: 50 MG, TID
     Route: 048
     Dates: start: 20130311, end: 20130327
  2. OXYCONTIN [Concomitant]
     Active Substance: OXYCODONE HYDROCHLORIDE
     Indication: PRODUCT USED FOR UNKNOWN INDICATION
     Route: 065

REACTIONS (1)
  - Loss of control of legs [Recovered/Resolved]

NARRATIVE: CASE EVENT DATE: 20130504
